FAERS Safety Report 6519780-4 (Version None)
Quarter: 2009Q4

REPORT INFORMATION
  Report Type: 
  Country: None (occurrence: None)
  Receive Date: 20091228
  Receipt Date: 20091228
  Transmission Date: 20100525
  Serious: Yes (Hospitalization)
  Sender: FDA-Public Use
  Company Number: None

PATIENT
  Age: 68 Year
  Sex: Male

DRUGS (2)
  1. MORPHINE [Suspect]
     Indication: PAIN
     Dosage: 60 MG TID PO
     Route: 048
     Dates: start: 20091130, end: 20091202
  2. OXYCODONE HCL [Suspect]
     Indication: PAIN
     Dosage: 15 MG PRN PO
     Route: 048
     Dates: start: 20091130, end: 20091202

REACTIONS (3)
  - BONE PAIN [None]
  - PNEUMONIA [None]
  - UNRESPONSIVE TO STIMULI [None]
